FAERS Safety Report 18852877 (Version 1)
Quarter: 2021Q1

REPORT INFORMATION
  Report Type: Other
  Country: CA (occurrence: CA)
  Receive Date: 20210205
  Receipt Date: 20210205
  Transmission Date: 20210420
  Serious: Yes (Death, Other)
  Sender: FDA-Public Use
  Company Number: CA-APOTEX-2021AP002178

PATIENT
  Age: 59 Year
  Sex: Female

DRUGS (8)
  1. CALCIUM CHLORIDE DIHYDRATE;GLUCOSE MONOHYDRATE;LACTIC ACID;MAGNESIUM C [CALCIUM CL\DEXTROSE\LACTIC ACID\MAGNESIUM CL\POTASSIUM CL\SODIUM BICAR\SODIUM CL] [Suspect]
     Active Substance: CALCIUM CL\DEXTROSE\LACTIC ACID\MAGNESIUM CL\POTASSIUM CL\SODIUM BICAR\SODIUM CL
     Indication: SEPSIS
     Dosage: UNK
     Route: 010
  2. POTASSIUM CHLORIDE. [Suspect]
     Active Substance: POTASSIUM CHLORIDE
     Indication: SEPSIS
  3. CALCIUM CHLORIDE DIHYDRATE;GLUCOSE MONOHYDRATE;LACTIC ACID;MAGNESIUM C [CALCIUM CL\DEXTROSE\LACTIC ACID\MAGNESIUM CL\POTASSIUM CL\SODIUM BICAR\SODIUM CL] [Suspect]
     Active Substance: CALCIUM CL\DEXTROSE\LACTIC ACID\MAGNESIUM CL\POTASSIUM CL\SODIUM BICAR\SODIUM CL
     Indication: ACUTE KIDNEY INJURY
     Dosage: UNK
     Route: 065
  4. LACTIC ACID;MAGNESIUM CHLORIDE;SODIUM CARBONATE ANHYDROUS;SODIUM CHLOR [Suspect]
     Active Substance: LACTIC ACID\MAGNESIUM CHLORIDE\SODIUM CARBONATE\SODIUM CHLORIDE
     Indication: SEPSIS
     Dosage: UNK
     Route: 010
  5. POTASSIUM CHLORIDE. [Suspect]
     Active Substance: POTASSIUM CHLORIDE
     Indication: ACUTE KIDNEY INJURY
  6. POTASSIUM CHLORIDE. [Suspect]
     Active Substance: POTASSIUM CHLORIDE
     Indication: SEPSIS
     Dosage: UNK
     Route: 010
  7. POTASSIUM CHLORIDE. [Suspect]
     Active Substance: POTASSIUM CHLORIDE
     Indication: ACUTE KIDNEY INJURY
     Dosage: UNK
     Route: 065
  8. LACTIC ACID;MAGNESIUM CHLORIDE;SODIUM CARBONATE ANHYDROUS;SODIUM CHLOR [Suspect]
     Active Substance: LACTIC ACID\MAGNESIUM CHLORIDE\SODIUM CARBONATE\SODIUM CHLORIDE
     Indication: ACUTE KIDNEY INJURY
     Dosage: UNK
     Route: 065

REACTIONS (4)
  - Wrong product administered [Unknown]
  - Blood potassium increased [Unknown]
  - Death [Fatal]
  - Product dispensing error [Unknown]
